FAERS Safety Report 5366634-5 (Version None)
Quarter: 2007Q2

REPORT INFORMATION
  Report Type: 
  Country: None (occurrence: None)
  Receive Date: 20070622
  Receipt Date: 20070611
  Transmission Date: 20071010
  Serious: Yes (Hospitalization)
  Sender: FDA-Public Use
  Company Number: FR-NOVOPROD-264494

PATIENT
  Age: 35 Year
  Sex: Male
  Weight: 118 kg

DRUGS (5)
  1. NORDITROPIN [Suspect]
     Indication: GROWTH HORMONE DEFICIENCY
     Dosage: .6 MG, QD
     Route: 058
     Dates: start: 20060406
  2. ANDROTARDYL [Concomitant]
     Dosage: 11.9 MG, QD
     Route: 058
     Dates: start: 19851101
  3. HYDROCORTISONE [Concomitant]
     Dosage: 20 MG, QD
     Route: 048
  4. LEVOTHYROXINE SODIUM [Concomitant]
     Dosage: 150 UG, UNK
     Route: 048
  5. MINIRIN [Concomitant]
     Dosage: 25 UG, QD
     Route: 055
     Dates: start: 19851101

REACTIONS (3)
  - BLOOD CREATINE PHOSPHOKINASE INCREASED [None]
  - HYPOKALAEMIA [None]
  - MYALGIA [None]
